FAERS Safety Report 5502795-2 (Version None)
Quarter: 2007Q4

REPORT INFORMATION
  Report Type: 
  Country: None (occurrence: None)
  Receive Date: 20071031
  Receipt Date: 20071018
  Transmission Date: 20080405
  Serious: Yes (Other)
  Sender: FDA-Public Use
  Company Number: US-AMGEN-US243956

PATIENT
  Sex: Female

DRUGS (5)
  1. ENBREL [Suspect]
     Indication: ANKYLOSING SPONDYLITIS
     Route: 058
     Dates: start: 20060803
  2. PRENATAL VITAMINS [Concomitant]
     Route: 065
  3. PAXIL [Concomitant]
     Route: 065
  4. ETODOLAC [Concomitant]
     Route: 065
  5. ALLEGRA [Concomitant]

REACTIONS (1)
  - ABORTION SPONTANEOUS [None]
